FAERS Safety Report 9147927 (Version 3)
Quarter: 2013Q2

REPORT INFORMATION
  Report Type: Spontaneous
  Country: US (occurrence: US)
  Receive Date: 20130307
  Receipt Date: 20130527
  Transmission Date: 20140414
  Serious: Yes (Death)
  Sender: FDA-Public Use
  Company Number: US-009507513-1303USA001680

PATIENT
  Sex: Male
  Weight: 122 kg

DRUGS (4)
  1. ISENTRESS [Suspect]
     Indication: HIV INFECTION
     Dosage: TOTAL DAILY DOSE: 800 MG
     Route: 048
     Dates: start: 20120123
  2. ISENTRESS [Suspect]
     Indication: ACQUIRED IMMUNODEFICIENCY SYNDROME
     Dosage: 400 MG, TWICE A DAY
     Route: 048
     Dates: start: 20120604
  3. TRUVADA [Concomitant]
     Indication: ACQUIRED IMMUNODEFICIENCY SYNDROME
     Dosage: UNK
     Dates: start: 20120123
  4. SELZENTRY [Concomitant]
     Indication: ACQUIRED IMMUNODEFICIENCY SYNDROME
     Dosage: TOTAL DAILY DOSE: 600 MG
     Dates: start: 20120123

REACTIONS (1)
  - Death [Fatal]
